FAERS Safety Report 4857452-2 (Version None)
Quarter: 2005Q4

REPORT INFORMATION
  Report Type: 
  Country: None (occurrence: None)
  Receive Date: 20051219
  Receipt Date: 20050307
  Transmission Date: 20060501
  Serious: No
  Sender: FDA-Public Use
  Company Number: US-GLAXOSMITHKLINE-A0548572A

PATIENT
  Sex: Female

DRUGS (1)
  1. EQUATE NTS 21MG [Suspect]
     Indication: DRUG USE FOR UNKNOWN INDICATION

REACTIONS (3)
  - COLD SWEAT [None]
  - HEADACHE [None]
  - STOMACH DISCOMFORT [None]
